FAERS Safety Report 10751431 (Version 3)
Quarter: 2015Q2

REPORT INFORMATION
  Report Type: Report from Study
  Country: JP (occurrence: None)
  Receive Date: 20150128
  Receipt Date: 20150428
  Transmission Date: 20150821
  Serious: Yes (Hospitalization)
  Sender: FDA-Public Use
  Company Number: 2015BPN0001

PATIENT
  Age: 2 Day
  Sex: Male
  Weight: 2.6 kg

DRUGS (9)
  1. SODIUM BENZOATE [Concomitant]
     Active Substance: SODIUM BENZOATE
  2. BUPHENYL [Suspect]
     Active Substance: SODIUM PHENYLBUTYRATE
     Indication: ORNITHINE TRANSCARBAMOYLASE DEFICIENCY
     Dosage: 660 MG (165 (1)-1 ORAL 4/1 DAY)
     Route: 048
     Dates: start: 20141217, end: 20141221
  3. ARGI-U (L-ARGININE HYDROCHLORIDE) [Concomitant]
  4. VICCILLIN (AMPICILLIN SODIUM) [Concomitant]
  5. INTRALIPOS (SOYBEAN OIL) [Concomitant]
  6. GRANSYRINGE (FILGRASTIM (GENETICAL RECOMBINATION) [Concomitant]
  7. KIDMIN (AMINO ACID PREPARATIONS FOR RENAL INSUFFICIENCY) [Concomitant]
  8. KENKETSU VENOGLOBULIN-IH (POLYETHYLENE GLYCOL TREATED HUMAN NORMAL IMMUNOGLOBULIN) [Concomitant]
  9. AMBISOME [Concomitant]
     Active Substance: AMPHOTERICIN B

REACTIONS (2)
  - Ileus paralytic [None]
  - Necrotising colitis [None]

NARRATIVE: CASE EVENT DATE: 20141219
